FAERS Safety Report 5451696-7 (Version None)
Quarter: 2007Q3

REPORT INFORMATION
  Report Type: 
  Country: None (occurrence: None)
  Receive Date: 20070913
  Receipt Date: 20070903
  Transmission Date: 20080115
  Serious: Yes (Other)
  Sender: FDA-Public Use
  Company Number: FR-PFIZER INC-2007003912

PATIENT
  Age: 50 Year
  Sex: Female

DRUGS (5)
  1. CEFPODOXIME PROXETIL [Suspect]
     Indication: INFLUENZA
     Dosage: DAILY DOSE:400MG
     Route: 048
     Dates: start: 20070107, end: 20070107
  2. CEFPODOXIME PROXETIL [Suspect]
     Indication: RHINITIS
  3. RHINADVIL [Concomitant]
     Route: 048
     Dates: start: 20070105, end: 20070110
  4. DAFALGAN [Concomitant]
     Route: 048
     Dates: start: 20070105, end: 20070105
  5. SOLU-MEDROL [Concomitant]
     Dosage: DAILY DOSE:60MG
     Route: 048
     Dates: start: 20070105, end: 20070105

REACTIONS (7)
  - ANGIOEDEMA [None]
  - DRUG ADMINISTRATION ERROR [None]
  - FEELING HOT [None]
  - PRURITUS [None]
  - RASH [None]
  - SWOLLEN TONGUE [None]
  - TACHYCARDIA [None]
